FAERS Safety Report 6072048-5 (Version None)
Quarter: 2009Q1

REPORT INFORMATION
  Report Type: 
  Country: None (occurrence: None)
  Receive Date: 20090205
  Receipt Date: 20090205
  Transmission Date: 20090719
  Serious: Yes (Other)
  Sender: FDA-Public Use
  Company Number: None

PATIENT
  Age: 8 Year
  Sex: Female
  Weight: 29.4838 kg

DRUGS (1)
  1. SINGULAIR [Suspect]
     Dosage: 1 PILL DAY PO
     Route: 048
     Dates: start: 20081101, end: 20081215

REACTIONS (11)
  - ABDOMINAL PAIN UPPER [None]
  - ABNORMAL BEHAVIOUR [None]
  - CRYING [None]
  - DEPRESSION [None]
  - FEAR [None]
  - HEADACHE [None]
  - INSOMNIA [None]
  - PERSONALITY CHANGE [None]
  - POLLAKIURIA [None]
  - SLEEP TERROR [None]
  - VISUAL IMPAIRMENT [None]
